FAERS Safety Report 7389379-9 (Version None)
Quarter: 2011Q2

REPORT INFORMATION
  Report Type: 
  Country: None (occurrence: None)
  Receive Date: 20110401
  Receipt Date: 20110324
  Transmission Date: 20111010
  Serious: Yes (Hospitalization)
  Sender: FDA-Public Use
  Company Number: B0709562A

PATIENT
  Age: 56 Year
  Sex: Female

DRUGS (6)
  1. DEROXAT [Suspect]
     Dosage: 20MG PER DAY
     Route: 048
  2. LITHIUM SULPHATE [Concomitant]
  3. METHYLENE BLUE [Suspect]
     Route: 065
     Dates: start: 20110225, end: 20110225
  4. NEXIUM [Suspect]
     Route: 042
     Dates: start: 20110225, end: 20110225
  5. ELTROXIN [Concomitant]
  6. ROCALTROL [Concomitant]

REACTIONS (8)
  - AGITATION [None]
  - MUTISM [None]
  - DISINHIBITION [None]
  - DYSKINESIA [None]
  - ANXIETY [None]
  - CONFUSIONAL STATE [None]
  - FAECAL INCONTINENCE [None]
  - URINARY INCONTINENCE [None]
